FAERS Safety Report 9409229 (Version 1)
Quarter: 2013Q3

REPORT INFORMATION
  Report Type: Spontaneous
  Country: US (occurrence: US)
  Receive Date: 20130719
  Receipt Date: 20130719
  Transmission Date: 20140515
  Serious: Yes (Hospitalization)
  Sender: FDA-Public Use
  Company Number: US-009507513-1307USA005454

PATIENT
  Age: 75 Year
  Sex: Female

DRUGS (2)
  1. SAPHRIS [Suspect]
     Dosage: UNK
  2. ZYPREXA [Concomitant]

REACTIONS (2)
  - Hypoaesthesia [Unknown]
  - Weight increased [Unknown]
